FAERS Safety Report 7423112-7 (Version None)
Quarter: 2011Q2

REPORT INFORMATION
  Report Type: 
  Country: None (occurrence: None)
  Receive Date: 20110419
  Receipt Date: 20110211
  Transmission Date: 20111010
  Serious: No
  Sender: FDA-Public Use
  Company Number: US-TYCO HEALTHCARE/MALLINCKRODT-T201100112

PATIENT
  Sex: Female

DRUGS (3)
  1. METHYLIN [Suspect]
     Indication: ATTENTION DEFICIT/HYPERACTIVITY DISORDER
     Dosage: 2 TAB IN AM, 1 TAB AT NOON, 1 TAB IN PM
     Route: 048
     Dates: start: 20101215, end: 20110121
  2. LEXAPRO [Concomitant]
     Dosage: UNK
  3. LISINOPRIL [Concomitant]
     Dosage: UNK

REACTIONS (2)
  - ANXIETY [None]
  - FEELING ABNORMAL [None]
